FAERS Safety Report 16751067 (Version 1)
Quarter: 2019Q4

REPORT INFORMATION
  Report Type: Spontaneous
  Country: US (occurrence: US)
  Receive Date: 20190828
  Receipt Date: 20190828
  Transmission Date: 20200122
  Serious: Yes (Hospitalization)
  Sender: FDA-Public Use
  Company Number: None

PATIENT
  Age: 51 Year
  Sex: Female

DRUGS (3)
  1. MIRAPEX, ERYTHROMYCIN [Concomitant]
  2. HUMIRA [Suspect]
     Active Substance: ADALIMUMAB
     Indication: RHEUMATOID ARTHRITIS
     Dosage: ?          OTHER FREQUENCY:EVERY TWO WEEKS;?
     Route: 058
     Dates: start: 20190521
  3. LEFLUNOMIDE, METHYLPHENIDATE [Concomitant]

REACTIONS (3)
  - Eye operation [None]
  - Injection site reaction [None]
  - Drug interaction [None]

NARRATIVE: CASE EVENT DATE: 20190827
